FAERS Safety Report 20730004 (Version 1)
Quarter: 2022Q2

REPORT INFORMATION
  Report Type: Spontaneous
  Country: IT (occurrence: None)
  Receive Date: 20220420
  Receipt Date: 20220420
  Transmission Date: 20220720
  Serious: Yes (Other)
  Sender: FDA-Public Use
  Company Number: 2022A148769

PATIENT
  Age: 69 Year
  Sex: Female
  Weight: 44 kg

DRUGS (11)
  1. DAPAGLIFLOZIN [Suspect]
     Active Substance: DAPAGLIFLOZIN
     Indication: Type 2 diabetes mellitus
     Route: 048
  2. ALUMINUM CHLOROHYDRATE\METHYLPREDNISOLONE ACETATE\SULFUR [Suspect]
     Active Substance: ALUMINUM CHLOROHYDRATE\METHYLPREDNISOLONE ACETATE\SULFUR
     Route: 065
  3. PLAQUENIL [Suspect]
     Active Substance: HYDROXYCHLOROQUINE SULFATE
     Indication: Rheumatoid arthritis
     Route: 048
     Dates: end: 20220406
  4. INCRUSE ELLIPTA [Concomitant]
     Active Substance: UMECLIDINIUM BROMIDE
  5. PANTOPRAZOLE SODIUM [Concomitant]
     Active Substance: PANTOPRAZOLE SODIUM
  6. LANTUS [Concomitant]
     Active Substance: INSULIN GLARGINE
  7. ACETYLSALICYLIC ACID/ACETIAMINE HYDROCHLORIDE [Concomitant]
  8. LEVOTHYROXINE SODIUM [Concomitant]
     Active Substance: LEVOTHYROXINE SODIUM
     Dosage: 25UG/INHAL
  9. FUROSEMIDE GALENICA SENESE [Concomitant]
     Dosage: 20 MG/2 ML
  10. ENOXAPARIN SODIUM [Concomitant]
     Active Substance: ENOXAPARIN SODIUM
  11. HUMALOG [Concomitant]
     Active Substance: INSULIN LISPRO
     Dosage: 100 U/ML
     Route: 065

REACTIONS (2)
  - Myopathy [Not Recovered/Not Resolved]
  - Sarcopenia [Not Recovered/Not Resolved]

NARRATIVE: CASE EVENT DATE: 20210801
